FAERS Safety Report 5243037-5 (Version None)
Quarter: 2007Q1

REPORT INFORMATION
  Report Type: 
  Country: None (occurrence: None)
  Receive Date: 20070215
  Receipt Date: 20070206
  Transmission Date: 20070707
  Serious: Yes (Hospitalization)
  Sender: FDA-Public Use
  Company Number: 2007-00697

PATIENT
  Age: 57 Year
  Sex: Female

DRUGS (12)
  1. OXYTROL [Suspect]
     Indication: HYPERTONIC BLADDER
     Dosage: 1 PATCH, 2/WEEK, TRANSDERMAL
     Route: 062
     Dates: start: 20070109, end: 20070202
  2. DIOVAN [Concomitant]
  3. HYDROCODONE W/ACETAMINOPHEN (PARACETAMOL) [Concomitant]
  4. ZOLOFT [Concomitant]
  5. REQUIP [Concomitant]
  6. NEURONTIN [Concomitant]
  7. PRILOSEC [Concomitant]
  8. ASPIRIN [Concomitant]
  9. VITAMIN B12 INJECTION [Concomitant]
  10. TEMAZEPAM [Concomitant]
  11. GEN-ALRPAZOLAM [Concomitant]
  12. NTG (GLYCERL TRINITRATE) [Concomitant]

REACTIONS (2)
  - ELECTROCARDIOGRAM QT PROLONGED [None]
  - NON-CARDIAC CHEST PAIN [None]
